FAERS Safety Report 4352528-0 (Version None)
Quarter: 2004Q2

REPORT INFORMATION
  Report Type: 
  Country: None (occurrence: None)
  Receive Date: 20040409
  Receipt Date: 20031219
  Transmission Date: 20050107
  Serious: No
  Sender: FDA-Public Use
  Company Number: PHEH2003US11604

PATIENT
  Sex: Female

DRUGS (2)
  1. ELIDEL [Suspect]
     Indication: ECZEMA
     Dosage: QD,TOPICAL
     Route: 061
  2. ETHANOL (ETHANOL) [Suspect]

REACTIONS (2)
  - BURNING SENSATION [None]
  - FLUSHING [None]
